FAERS Safety Report 7135467-1 (Version None)
Quarter: 2010Q4

REPORT INFORMATION
  Report Type: 
  Country: None (occurrence: None)
  Receive Date: 20101203
  Receipt Date: 20101120
  Transmission Date: 20110411
  Serious: No
  Sender: FDA-Public Use
  Company Number: US-B.I. PHARMACEUTICALS,INC./RIDGEFIELD-2010-BP-13126BP

PATIENT
  Sex: Female

DRUGS (1)
  1. ZANTAC 150 [Suspect]
     Indication: UNEVALUABLE EVENT
     Dosage: 150 MG
     Route: 048
     Dates: start: 19950101

REACTIONS (4)
  - BLOOD CHOLESTEROL INCREASED [None]
  - DIARRHOEA [None]
  - HYPERTENSION [None]
  - POLYP [None]
